FAERS Safety Report 25454584 (Version 1)
Quarter: 2025Q2

REPORT INFORMATION
  Report Type: Spontaneous
  Country: TR (occurrence: TR)
  Receive Date: 20250619
  Receipt Date: 20250619
  Transmission Date: 20250717
  Serious: Yes (Other)
  Sender: BRISTOL-MYERS SQUIBB COMPANY
  Company Number: TR-BRISTOL-MYERS SQUIBB COMPANY-2025-083343

PATIENT
  Age: 75 Year
  Sex: Female

DRUGS (1)
  1. KENALOG [Suspect]
     Active Substance: TRIAMCINOLONE ACETONIDE
     Indication: Epiretinal membrane peel

REACTIONS (3)
  - Retinal deposits [Recovered/Resolved]
  - Administration site extravasation [Recovered/Resolved]
  - Off label use [Unknown]
